FAERS Safety Report 4568891-1 (Version None)
Quarter: 2005Q1

REPORT INFORMATION
  Report Type: 
  Country: None (occurrence: None)
  Receive Date: 20050113
  Receipt Date: 20050113
  Transmission Date: 20050727
  Serious: No
  Sender: FDA-Public Use
  Company Number: None

PATIENT
  Sex: Female
  Weight: 47.6277 kg

DRUGS (2)
  1. PERCOCET-5 [Suspect]
     Indication: HEADACHE
     Dosage: QID PRN [ LIFETIME]
  2. PERCOCET-5 [Suspect]
     Indication: NEUROPATHY
     Dosage: QID PRN [ LIFETIME]

REACTIONS (1)
  - VOMITING [None]
